FAERS Safety Report 5278551-X (Version None)
Quarter: 2007Q1

REPORT INFORMATION
  Report Type: 
  Country: None (occurrence: None)
  Receive Date: 20070322
  Receipt Date: 20070306
  Transmission Date: 20070707
  Serious: Yes (Death, Hospitalization)
  Sender: FDA-Public Use
  Company Number: 2006BI016431

PATIENT
  Age: 55 Year
  Sex: Female

DRUGS (18)
  1. AVONEX [Suspect]
     Indication: MULTIPLE SCLEROSIS
     Dosage: 30 UG;QW;IM
     Route: 030
     Dates: start: 20010101, end: 20030101
  2. AVONEX [Suspect]
     Indication: MULTIPLE SCLEROSIS
     Dosage: 30 UG;QW;IM
     Route: 030
     Dates: start: 20030101, end: 20050601
  3. AVONEX [Suspect]
     Indication: MULTIPLE SCLEROSIS
     Dosage: 30 UG;QW;IM
     Route: 030
     Dates: start: 20051201, end: 20060217
  4. COPAXONE [Concomitant]
  5. BENAZEPRIL HYDROCHLORIDE [Concomitant]
  6. CARBAMAZEPINE [Concomitant]
  7. WARFARIN SODIUM [Concomitant]
  8. XALATAN [Concomitant]
  9. METOCLOPRAMIDE [Concomitant]
  10. ALPHAGAN [Concomitant]
  11. ARICEPT [Concomitant]
  12. LEXAPRO [Concomitant]
  13. BACLOFEN [Concomitant]
  14. ABILIFY [Concomitant]
  15. GABAPENTIN [Concomitant]
  16. COPA [Concomitant]
  17. JEVITY [Concomitant]
  18. PEDIALYTE [Concomitant]

REACTIONS (29)
  - ANAEMIA [None]
  - APHASIA [None]
  - BRONCHOSPASM [None]
  - CONVULSION [None]
  - DECUBITUS ULCER [None]
  - DEEP VEIN THROMBOSIS [None]
  - DEHYDRATION [None]
  - DEMENTIA [None]
  - DEPRESSION [None]
  - DIARRHOEA [None]
  - DYSPHAGIA [None]
  - DYSPHONIA [None]
  - ELECTROLYTE IMBALANCE [None]
  - HAEMATOCHEZIA [None]
  - HYPERTENSION [None]
  - HYPONATRAEMIA [None]
  - INFLUENZA LIKE ILLNESS [None]
  - MULTIPLE SCLEROSIS [None]
  - NEUROGENIC BLADDER [None]
  - OSTEOPOROSIS [None]
  - PNEUMONIA [None]
  - PSYCHOTIC DISORDER [None]
  - PYELONEPHRITIS [None]
  - QUADRIPLEGIA [None]
  - TACHYCARDIA [None]
  - TRIGEMINAL NEURALGIA [None]
  - URINARY TRACT INFECTION [None]
  - WEIGHT DECREASED [None]
  - WEIGHT INCREASED [None]
